FAERS Safety Report 10064241 (Version 1)
Quarter: 2014Q2

REPORT INFORMATION
  Report Type: Spontaneous
  Country: IT (occurrence: IT)
  Receive Date: 20140408
  Receipt Date: 20140408
  Transmission Date: 20141212
  Serious: Yes (Hospitalization)
  Sender: FDA-Public Use
  Company Number: IT-RANBAXY-2014RR-79940

PATIENT
  Age: 23 Year
  Sex: Female

DRUGS (1)
  1. AMOXICILLIN [Suspect]
     Indication: PRODUCT USED FOR UNKNOWN INDICATION
     Dosage: 1 G, COMPLETE
     Route: 048
     Dates: start: 20140304, end: 20140304

REACTIONS (3)
  - Erythema [Recovering/Resolving]
  - Tachycardia [Recovering/Resolving]
  - Urticaria [Recovering/Resolving]
